FAERS Safety Report 19913315 (Version 1)
Quarter: 2021Q4

REPORT INFORMATION
  Report Type: Spontaneous
  Country: IT (occurrence: IT)
  Receive Date: 20211004
  Receipt Date: 20211004
  Transmission Date: 20220304
  Serious: Yes (Hospitalization)
  Sender: FDA-Public Use
  Company Number: IT-ABBVIE-21K-083-4102933-00

PATIENT
  Sex: Female

DRUGS (5)
  1. VALPROIC ACID [Suspect]
     Active Substance: VALPROIC ACID
     Indication: Adjustment disorder with depressed mood
     Route: 048
     Dates: start: 20181006, end: 20181013
  2. VALPROIC ACID [Suspect]
     Active Substance: VALPROIC ACID
     Route: 048
  3. QUETIAPINE FUMARATE [Suspect]
     Active Substance: QUETIAPINE FUMARATE
     Indication: Adjustment disorder with depressed mood
     Route: 048
     Dates: start: 20181006, end: 20181013
  4. RISPERIDONE [Suspect]
     Active Substance: RISPERIDONE
     Indication: Adjustment disorder with depressed mood
     Dosage: DOSAGE DECREASED
     Route: 048
  5. RAMIPRIL [Concomitant]
     Active Substance: RAMIPRIL
     Indication: Product used for unknown indication
     Route: 065

REACTIONS (2)
  - Depressed level of consciousness [Recovered/Resolved]
  - Hypokinesia [Recovered/Resolved]

NARRATIVE: CASE EVENT DATE: 20181013
